FAERS Safety Report 4434250-5 (Version None)
Quarter: 2004Q3

REPORT INFORMATION
  Report Type: 
  Country: None (occurrence: None)
  Receive Date: 20040825
  Receipt Date: 20040817
  Transmission Date: 20050211
  Serious: Yes (Life-Threatening, Hospitalization)
  Sender: FDA-Public Use
  Company Number: 200410082BCA

PATIENT
  Age: 67 Year
  Sex: Female

DRUGS (6)
  1. CIPRO [Suspect]
     Indication: URINARY TRACT INFECTION
     Dosage: 500 MG, BID, ORAL
     Route: 048
     Dates: start: 20021122
  2. FUROSEMIDE [Concomitant]
  3. LISINOPRIL [Concomitant]
  4. AMIODARONE [Concomitant]
  5. DIGOXIN [Concomitant]
  6. WARFARIN SODIUM [Concomitant]

REACTIONS (17)
  - ANAEMIA [None]
  - AORTIC VALVE DISEASE [None]
  - BLOOD POTASSIUM DECREASED [None]
  - DILATATION ATRIAL [None]
  - DILATATION VENTRICULAR [None]
  - ELECTROCARDIOGRAM QT CORRECTED INTERVAL PROLONGED [None]
  - ELECTROCARDIOGRAM QT PROLONGED [None]
  - ELECTROCARDIOGRAM R ON T PHENOMENON [None]
  - EXTRASYSTOLES [None]
  - MITRAL VALVE INCOMPETENCE [None]
  - RENAL IMPAIRMENT [None]
  - TORSADE DE POINTES [None]
  - TRICUSPID VALVE INCOMPETENCE [None]
  - VENTRICULAR DYSFUNCTION [None]
  - VENTRICULAR EXTRASYSTOLES [None]
  - VENTRICULAR TACHYCARDIA [None]
  - VIRAL MYOCARDITIS [None]
